FAERS Safety Report 7958167-4 (Version None)
Quarter: 2011Q4

REPORT INFORMATION
  Report Type: 
  Country: None (occurrence: None)
  Receive Date: 20111205
  Receipt Date: 20111125
  Transmission Date: 20120403
  Serious: Yes (Other)
  Sender: FDA-Public Use
  Company Number: US-ASTRAZENECA-2011SE71849

PATIENT
  Age: 83 Year
  Sex: Female

DRUGS (1)
  1. ARIMIDEX [Suspect]
     Route: 048

REACTIONS (4)
  - PRURITUS [None]
  - HEPATIC NEOPLASM [None]
  - BONE NEOPLASM MALIGNANT [None]
  - DRY SKIN [None]
